FAERS Safety Report 7709123-2 (Version None)
Quarter: 2011Q3

REPORT INFORMATION
  Report Type: 
  Country: None (occurrence: None)
  Receive Date: 20110825
  Receipt Date: 20110815
  Transmission Date: 20111222
  Serious: Yes (Life-Threatening, Hospitalization, Disabling, Other)
  Sender: FDA-Public Use
  Company Number: PHHY2011US56045

PATIENT
  Sex: Female
  Weight: 75.283 kg

DRUGS (7)
  1. PRILOSEC [Concomitant]
     Dosage: 40 MG, BID
     Route: 048
  2. RECLAST [Suspect]
     Indication: OSTEOPOROSIS
     Route: 042
     Dates: start: 20110616
  3. COMBISERA [Concomitant]
  4. SYNTHROID [Concomitant]
     Dosage: 100 MG, QD
     Route: 048
  5. CRESTOR [Concomitant]
     Route: 048
  6. MVC [Concomitant]
  7. ZOFRAN [Concomitant]
     Dosage: 4 MG, PRN

REACTIONS (13)
  - ASTHENIA [None]
  - CHEST PAIN [None]
  - THROMBOCYTOPENIA [None]
  - DYSPNOEA [None]
  - PAIN [None]
  - DIVERTICULITIS [None]
  - NAUSEA [None]
  - NEUTROPENIA [None]
  - WHITE BLOOD CELL DISORDER [None]
  - ABDOMINAL PAIN [None]
  - DEHYDRATION [None]
  - PYREXIA [None]
  - HEADACHE [None]
